FAERS Safety Report 8145421-9 (Version None)
Quarter: 2012Q1

REPORT INFORMATION
  Report Type: 
  Country: None (occurrence: None)
  Receive Date: 20120217
  Receipt Date: 20120206
  Transmission Date: 20120608
  Serious: Yes (Hospitalization, Other)
  Sender: FDA-Public Use
  Company Number: GB-BRISTOL-MYERS SQUIBB COMPANY-16340010

PATIENT
  Age: 72 Year
  Sex: Male
  Weight: 81 kg

DRUGS (6)
  1. BISOPROLOL FUMARATE [Concomitant]
     Route: 048
  2. SIMVASTATIN [Concomitant]
     Dosage: AT NIGHT
  3. ASPIRIN [Suspect]
     Route: 048
  4. YERVOY [Suspect]
     Indication: METASTATIC MALIGNANT MELANOMA
     Dosage: COMPLETED 4 DOSES ON APPROX WEEK COMMENCING 19DEC11,3MG/KG
     Route: 042
     Dates: start: 20111007, end: 20111214
  5. LEVOTHYROXINE SODIUM [Concomitant]
  6. ZOPICLONE [Concomitant]
     Dosage: AT NIGHT
     Route: 048

REACTIONS (12)
  - HAEMOPTYSIS [None]
  - HAEMOGLOBIN DECREASED [None]
  - BLOOD SODIUM DECREASED [None]
  - HYPOTENSION [None]
  - GASTROINTESTINAL HAEMORRHAGE [None]
  - CONFUSIONAL STATE [None]
  - ABNORMAL BEHAVIOUR [None]
  - HAEMATEMESIS [None]
  - DIARRHOEA [None]
  - PYREXIA [None]
  - MALAISE [None]
  - CONSTIPATION [None]
